FAERS Safety Report 25835347 (Version 1)
Quarter: 2025Q3

REPORT INFORMATION
  Report Type: Report from Study
  Country: EU (occurrence: EU)
  Receive Date: 20250923
  Receipt Date: 20250923
  Transmission Date: 20251021
  Serious: Yes (Other)
  Sender: CELLTRION
  Company Number: EU-ABBVIE-6443098

PATIENT

DRUGS (2)
  1. ADALIMUMAB [Suspect]
     Active Substance: ADALIMUMAB
     Indication: Inflammatory bowel disease
     Route: 058
  2. ADALIMUMAB [Suspect]
     Active Substance: ADALIMUMAB

REACTIONS (1)
  - Visceral leishmaniasis [Unknown]
